FAERS Safety Report 7764157-7 (Version None)
Quarter: 2011Q3

REPORT INFORMATION
  Report Type: 
  Country: None (occurrence: None)
  Receive Date: 20110921
  Receipt Date: 20110912
  Transmission Date: 20111222
  Serious: Yes (Other)
  Sender: FDA-Public Use
  Company Number: US-BAYER-201021616NA

PATIENT
  Age: 43 Year
  Sex: Female
  Weight: 71 kg

DRUGS (5)
  1. YAZ [Suspect]
     Dosage: UNK UNK, QD
     Route: 048
     Dates: start: 20060601, end: 20060801
  2. ADVIL LIQUI-GELS [Concomitant]
     Dosage: UNK UNK, PRN
  3. YASMIN [Suspect]
     Dosage: UNK UNK, QD
     Route: 048
     Dates: start: 20060601, end: 20060801
  4. PAXIL [Concomitant]
     Dosage: UNK
     Dates: start: 20010101, end: 20060101
  5. PAROXETINE [Concomitant]
     Indication: ANXIETY
     Dosage: 10 MG, QD
     Route: 048

REACTIONS (1)
  - CEREBROVASCULAR ACCIDENT [None]
